FAERS Safety Report 5405485-X (Version None)
Quarter: 2007Q3

REPORT INFORMATION
  Report Type: 
  Country: None (occurrence: None)
  Receive Date: 20070803
  Receipt Date: 20070723
  Transmission Date: 20080115
  Serious: Yes (Other)
  Sender: FDA-Public Use
  Company Number: JP-PFIZER INC-2007053711

PATIENT
  Sex: Male
  Weight: 56 kg

DRUGS (11)
  1. GABAPEN [Suspect]
     Indication: EPILEPSY
     Dosage: DAILY DOSE:1600MG
     Route: 048
  2. DRUG, UNSPECIFIED [Suspect]
  3. TEGRETOL [Suspect]
     Route: 048
  4. CHARCOAL, ACTIVATED [Suspect]
  5. VALPROATE SODIUM [Concomitant]
     Route: 048
  6. CLONAZEPAM [Concomitant]
     Route: 048
  7. DIOVAN [Concomitant]
     Route: 048
  8. NORVASC [Concomitant]
     Route: 048
  9. ALOSENN [Concomitant]
     Route: 048
  10. PURSENNID [Concomitant]
     Route: 048
  11. BIOFERMIN [Concomitant]
     Route: 048

REACTIONS (8)
  - AGITATION [None]
  - DRUG LEVEL ABOVE THERAPEUTIC [None]
  - FAECES DISCOLOURED [None]
  - HYPERTENSION [None]
  - HYPERTHERMIA [None]
  - INCONTINENCE [None]
  - SOMNOLENCE [None]
  - SUICIDE ATTEMPT [None]
